FAERS Safety Report 6412390-9 (Version None)
Quarter: 2009Q4

REPORT INFORMATION
  Report Type: 
  Country: None (occurrence: None)
  Receive Date: 20091023
  Receipt Date: 20091015
  Transmission Date: 20100525
  Serious: Yes (Other)
  Sender: FDA-Public Use
  Company Number: CHPA2009US20421

PATIENT
  Age: 62 Year
  Sex: Female
  Weight: 58.05 kg

DRUGS (3)
  1. PRIVATE LABEL STEP 1 21MG ACCT UNKNOWN (NCH) [Suspect]
     Indication: SMOKING CESSATION THERAPY
     Dosage: 21 MG, QD
     Route: 062
     Dates: start: 20091004, end: 20091013
  2. ANTIBIOTICS [Concomitant]
     Indication: BRONCHITIS
     Dosage: UNK
     Route: 065
     Dates: start: 20091001, end: 20091001
  3. PREDNISONE [Concomitant]
     Dosage: UNK
     Route: 065
     Dates: start: 20091001, end: 20091001

REACTIONS (5)
  - APPLICATION SITE PRURITUS [None]
  - CHEST DISCOMFORT [None]
  - CHRONIC OBSTRUCTIVE PULMONARY DISEASE [None]
  - PANIC ATTACK [None]
  - SLEEP DISORDER [None]
